FAERS Safety Report 19546240 (Version 3)
Quarter: 2021Q3

REPORT INFORMATION
  Report Type: Spontaneous
  Country: NG (occurrence: NG)
  Receive Date: 20210713
  Receipt Date: 20210726
  Transmission Date: 20211014
  Serious: Yes (Life-Threatening, Hospitalization)
  Sender: FDA-Public Use
  Company Number: NVSC2021NG155453

PATIENT
  Age: 23 Year
  Sex: Male

DRUGS (8)
  1. TEGRETOL XR [Suspect]
     Active Substance: CARBAMAZEPINE
     Dosage: UNK
     Route: 065
  2. HALOPERIDOL. [Concomitant]
     Active Substance: HALOPERIDOL
     Dosage: 15 MG, BID
     Route: 065
  3. CHLORPROMAZINE. [Concomitant]
     Active Substance: CHLORPROMAZINE
     Indication: PRODUCT USED FOR UNKNOWN INDICATION
     Dosage: 20 MG
     Route: 065
  4. TEGRETOL XR [Suspect]
     Active Substance: CARBAMAZEPINE
     Indication: DRUG ABUSE
     Dosage: 400 MG, BID
     Route: 048
  5. HALOPERIDOL. [Concomitant]
     Active Substance: HALOPERIDOL
     Indication: PSYCHOTIC DISORDER
     Dosage: 150 MG, BID
     Route: 048
     Dates: start: 20210628
  6. ARTEMETHER + LUMEFANTRINE [Concomitant]
     Active Substance: ARTEMETHER\LUMEFANTRINE
     Indication: PRODUCT USED FOR UNKNOWN INDICATION
     Dosage: UNK, BID (80/480 FOR 3 DAYS)
     Route: 065
  7. TEGRETOL XR [Suspect]
     Active Substance: CARBAMAZEPINE
     Dosage: 400 MG, BID
     Route: 048
     Dates: start: 20210611
  8. CHLORPHENIRAMINE. [Concomitant]
     Active Substance: CHLORPHENIRAMINE
     Indication: PRODUCT USED FOR UNKNOWN INDICATION
     Dosage: 20 MG
     Route: 048
     Dates: start: 20210628

REACTIONS (8)
  - Rash [Unknown]
  - Skin exfoliation [Unknown]
  - Headache [Unknown]
  - Stevens-Johnson syndrome [Unknown]
  - Eye discharge [Unknown]
  - Product use in unapproved indication [Unknown]
  - Oropharyngeal pain [Unknown]
  - Lip blister [Unknown]
